FAERS Safety Report 6772653-4 (Version None)
Quarter: 2010Q2

REPORT INFORMATION
  Report Type: 
  Country: None (occurrence: None)
  Receive Date: 20100616
  Receipt Date: 20091102
  Transmission Date: 20101027
  Serious: No
  Sender: FDA-Public Use
  Company Number: US-ASTRAZENECA-2009SE24038

PATIENT
  Sex: Female
  Weight: 52.6 kg

DRUGS (6)
  1. PULMICORT FLEXHALER [Suspect]
     Route: 055
     Dates: start: 20091030
  2. NEXIUM [Concomitant]
  3. SEREVENT [Concomitant]
  4. LIPITOR [Concomitant]
  5. ASPIRIN [Concomitant]
  6. DIAZEPAM [Concomitant]

REACTIONS (2)
  - CHRONIC OBSTRUCTIVE PULMONARY DISEASE [None]
  - DYSPHONIA [None]
